FAERS Safety Report 10072036 (Version 1)
Quarter: 2014Q2

REPORT INFORMATION
  Report Type: Spontaneous
  Country: US (occurrence: None)
  Receive Date: 20140410
  Receipt Date: 20140410
  Transmission Date: 20141212
  Serious: Yes (Life-Threatening, Disabling)
  Sender: FDA-Public Use
  Company Number: None

PATIENT
  Age: 56 Year
  Sex: Female
  Weight: 95.26 kg

DRUGS (11)
  1. ALEVE [Suspect]
     Indication: PAIN
     Dosage: 1 EVERY 12 HOURS. 1 IN THE MORNING 1 AT BEDTIME BY MOUTH.
     Route: 048
     Dates: end: 20131217
  2. ALEVE [Suspect]
     Indication: SCIATICA
     Dosage: 1 EVERY 12 HOURS. 1 IN THE MORNING 1 AT BEDTIME BY MOUTH.
     Route: 048
     Dates: end: 20131217
  3. ARMOUR THYROID [Concomitant]
  4. CLONIDINE [Concomitant]
  5. HYDROCHLOROTHYAZIDE [Concomitant]
  6. DIPHENHYDRAMINE [Concomitant]
  7. LATUDA [Concomitant]
  8. SEROQUEL XR [Concomitant]
  9. SEROQUEL [Concomitant]
  10. MULTIVITAMIN (50+) [Concomitant]
  11. CALCIUM + D [Concomitant]

REACTIONS (14)
  - Pain [None]
  - Nausea [None]
  - Vomiting [None]
  - Hunger [None]
  - Abdominal pain upper [None]
  - Dyspepsia [None]
  - Nodule [None]
  - Finger deformity [None]
  - Flatulence [None]
  - Joint swelling [None]
  - Hyperhidrosis [None]
  - Secretion discharge [None]
  - Paranasal sinus hypersecretion [None]
  - Malaise [None]
